FAERS Safety Report 7249784-8 (Version None)
Quarter: 2011Q1

REPORT INFORMATION
  Report Type: 
  Country: None (occurrence: None)
  Receive Date: 20110128
  Receipt Date: 20100224
  Transmission Date: 20110831
  Serious: No
  Sender: FDA-Public Use
  Company Number: A0852435A

PATIENT

DRUGS (1)
  1. WELLBUTRIN XL [Suspect]

REACTIONS (1)
  - DRUG EXPOSURE VIA BREAST MILK [None]
